FAERS Safety Report 18410125 (Version 1)
Quarter: 2020Q4

REPORT INFORMATION
  Report Type: Report from Study
  Country: CA (occurrence: CA)
  Receive Date: 20201021
  Receipt Date: 20201021
  Transmission Date: 20210114
  Serious: Yes (Hospitalization)
  Sender: FDA-Public Use
  Company Number: CA-ASTRAZENECA-2019SE08855

PATIENT
  Age: 68 Year
  Sex: Male

DRUGS (15)
  1. AMLODIPINE [Concomitant]
     Active Substance: AMLODIPINE BESYLATE
     Dates: start: 201804
  2. HYDROMORPH CONTIN [Concomitant]
     Active Substance: HYDROMORPHONE
     Dates: start: 201802
  3. TELMISARTAN. [Concomitant]
     Active Substance: TELMISARTAN
     Dates: start: 2017, end: 20190131
  4. TAMSULOSIN [Concomitant]
     Active Substance: TAMSULOSIN
     Dates: start: 201803
  5. RABEPRAZOLE [Concomitant]
     Active Substance: RABEPRAZOLE
     Dates: start: 201802
  6. CICLESONIDE [Concomitant]
     Active Substance: CICLESONIDE
     Dates: start: 2018
  7. DENOSUMAB [Concomitant]
     Active Substance: DENOSUMAB
     Dates: start: 20180517
  8. CALCIUM [Concomitant]
     Active Substance: CALCIUM
     Dates: start: 201802
  9. VITAMIN D [Concomitant]
     Active Substance: VITAMIN D NOS
     Dates: start: 201802
  10. HYDROMORPHONE [Concomitant]
     Active Substance: HYDROMORPHONE
     Dates: start: 201802
  11. TREMELIMUMAB. [Suspect]
     Active Substance: TREMELIMUMAB
     Indication: HORMONE-REFRACTORY PROSTATE CANCER
     Route: 042
     Dates: start: 20181108
  12. DURVALUMAB. [Suspect]
     Active Substance: DURVALUMAB
     Indication: HORMONE-REFRACTORY PROSTATE CANCER
     Route: 042
     Dates: start: 20181108
  13. PROPANOLOL [Concomitant]
     Active Substance: PROPRANOLOL HYDROCHLORIDE
     Dates: start: 20181129, end: 20190131
  14. PREDNISONE. [Concomitant]
     Active Substance: PREDNISONE
     Dates: start: 20181201, end: 20190114
  15. RESTORALAX [Concomitant]
     Active Substance: POLYETHYLENE GLYCOL 3350
     Dates: start: 201802

REACTIONS (3)
  - Haemorrhage intracranial [Unknown]
  - Adrenal insufficiency [Recovered/Resolved]
  - Confusional state [Recovered/Resolved]

NARRATIVE: CASE EVENT DATE: 20190114
